FAERS Safety Report 7118636-6 (Version None)
Quarter: 2010Q4

REPORT INFORMATION
  Report Type: 
  Country: None (occurrence: None)
  Receive Date: 20101123
  Receipt Date: 20101116
  Transmission Date: 20110411
  Serious: Yes (Hospitalization)
  Sender: FDA-Public Use
  Company Number: US-JNJFOC-20101106269

PATIENT
  Sex: Female
  Weight: 54.43 kg

DRUGS (3)
  1. USTEKINUMAB [Suspect]
     Indication: PSORIASIS
     Route: 058
  2. USTEKINUMAB [Suspect]
     Route: 058
  3. CORTICOSTEROIDS [Concomitant]

REACTIONS (3)
  - DEHYDRATION [None]
  - LARYNGITIS [None]
  - PNEUMONIA [None]
